FAERS Safety Report 6074929-5 (Version None)
Quarter: 2009Q1

REPORT INFORMATION
  Report Type: 
  Country: None (occurrence: None)
  Receive Date: 20090212
  Receipt Date: 20090205
  Transmission Date: 20090719
  Serious: Yes (Hospitalization)
  Sender: FDA-Public Use
  Company Number: FR-ABBOTT-09P-056-0501829-00

PATIENT
  Sex: Male

DRUGS (1)
  1. DEPAKENE [Suspect]
     Indication: EPILEPSY
     Route: 048
     Dates: end: 20081002

REACTIONS (4)
  - DRUG LEVEL INCREASED [None]
  - GRAND MAL CONVULSION [None]
  - HYPOXIA [None]
  - PULMONARY ALVEOLAR HAEMORRHAGE [None]
